FAERS Safety Report 8256455-8 (Version None)
Quarter: 2012Q2

REPORT INFORMATION
  Report Type: 
  Country: None (occurrence: None)
  Receive Date: 20120403
  Receipt Date: 20120402
  Transmission Date: 20120825
  Serious: No
  Sender: FDA-Public Use
  Company Number: US-PFIZER INC-2012067001

PATIENT

DRUGS (3)
  1. GEODON [Suspect]
     Dosage: 40 MG, 3X/DAY
  2. VISTARIL [Suspect]
     Dosage: 50 MG, 3X/DAY
  3. ZOLOFT [Suspect]
     Dosage: 100 MG, DAILY

REACTIONS (1)
  - GENERAL PHYSICAL HEALTH DETERIORATION [None]
